FAERS Safety Report 21849656 (Version 7)
Quarter: 2023Q1

REPORT INFORMATION
  Report Type: Report from Study
  Country: CA (occurrence: CA)
  Receive Date: 20230111
  Receipt Date: 20230213
  Transmission Date: 20230418
  Serious: Yes (Other)
  Sender: FDA-Public Use
  Company Number: CA-AstraZeneca-2023A002242

PATIENT
  Age: 72 Year
  Sex: Female
  Weight: 59 kg

DRUGS (4)
  1. ENHERTU [Suspect]
     Active Substance: FAM-TRASTUZUMAB DERUXTECAN-NXKI
     Indication: Breast cancer metastatic
     Dosage: 189 MG, ONCE EVERY 3 WK
     Route: 042
     Dates: start: 20220930
  2. ENHERTU [Suspect]
     Active Substance: FAM-TRASTUZUMAB DERUXTECAN-NXKI
     Dosage: 260 MG, ONCE EVERY 3 WK
     Route: 042
     Dates: start: 20220930
  3. ENHERTU [Suspect]
     Active Substance: FAM-TRASTUZUMAB DERUXTECAN-NXKI
     Dosage: 318 MG, ONCE EVERY 3 WK
     Route: 042
     Dates: start: 20220930
  4. LETROZOLE [Concomitant]
     Active Substance: LETROZOLE

REACTIONS (10)
  - Toxicity to various agents [Unknown]
  - Pruritus [Unknown]
  - Rash pruritic [Unknown]
  - Rash vesicular [Unknown]
  - Skin haemorrhage [Unknown]
  - Skin abrasion [Unknown]
  - Scab [Unknown]
  - Rash [Unknown]
  - Skin toxicity [Unknown]
  - Off label use [Unknown]

NARRATIVE: CASE EVENT DATE: 20221201
